FAERS Safety Report 18338026 (Version 1)
Quarter: 2020Q3

REPORT INFORMATION
  Report Type: Spontaneous
  Country: US (occurrence: US)
  Receive Date: 20200927
  Receipt Date: 20200927
  Transmission Date: 20201103
  Serious: Yes (Other)
  Sender: FDA-Public Use
  Company Number: None

PATIENT
  Age: 7 Decade
  Sex: Female

DRUGS (2)
  1. TOCILIZUMAB. [Suspect]
     Active Substance: TOCILIZUMAB
     Indication: COVID-19
     Dosage: DOSE: 400 MG (5MG/KG)?DURATION: 1 DAY (2 SINGLE ADMINISTRATIONS ON HOSPITAL DAY 7 AND 11)
     Route: 042
     Dates: start: 2020
  2. HYDROXYCHLOROQUINE [Suspect]
     Active Substance: HYDROXYCHLOROQUINE
     Indication: COVID-19
     Dosage: DURATION: 4 DAYS(HOSPITAL DAY 2?5)
     Route: 048
     Dates: start: 2020

REACTIONS (15)
  - Inflammatory marker increased [None]
  - Product use issue [None]
  - Lung opacity [None]
  - Dyspnoea [None]
  - Oxygen saturation decreased [None]
  - Lymphopenia [None]
  - Serum ferritin increased [None]
  - Chest X-ray abnormal [None]
  - Oxygen consumption increased [None]
  - Cough [None]
  - Hypoxia [None]
  - Rales [None]
  - Brain natriuretic peptide decreased [None]
  - C-reactive protein increased [None]
  - Acute kidney injury [None]
